FAERS Safety Report 9200768 (Version 1)
Quarter: 2013Q1

REPORT INFORMATION
  Report Type: Spontaneous
  Country: US (occurrence: None)
  Receive Date: 20130328
  Receipt Date: 20130328
  Transmission Date: 20140127
  Serious: Yes (Hospitalization)
  Sender: FDA-Public Use
  Company Number: None

PATIENT
  Age: 62 Year
  Sex: Female
  Weight: 149.5 kg

DRUGS (2)
  1. CEFEPIME [Suspect]
     Indication: BACTERAEMIA
     Route: 042
     Dates: start: 20120405, end: 20120408
  2. CEFEPIME [Suspect]
     Indication: URINARY TRACT INFECTION
     Route: 042
     Dates: start: 20120405, end: 20120408

REACTIONS (1)
  - Convulsion [None]
